FAERS Safety Report 11176792 (Version 1)
Quarter: 2015Q2

REPORT INFORMATION
  Report Type: Spontaneous
  Country: US (occurrence: None)
  Receive Date: 20150609
  Receipt Date: 20150609
  Transmission Date: 20150821
  Serious: Yes (Other)
  Sender: FDA-Public Use
  Company Number: None

PATIENT
  Age: 76 Year
  Sex: Female
  Weight: 57.15 kg

DRUGS (14)
  1. RANITIDINE [Concomitant]
     Active Substance: RANITIDINE\RANITIDINE HYDROCHLORIDE
  2. ACIDOPHILUS [Concomitant]
     Active Substance: LACTOBACILLUS ACIDOPHILUS
  3. PRESERVISION [Concomitant]
     Active Substance: MINERALS\VITAMINS
  4. CENTRUM SILVER [Concomitant]
     Active Substance: VITAMINS
  5. LORAZEPAM. [Concomitant]
     Active Substance: LORAZEPAM
  6. FISH OIL [Concomitant]
     Active Substance: FISH OIL
  7. WHO Q10 [Concomitant]
  8. ATENOLOL. [Concomitant]
     Active Substance: ATENOLOL
  9. LOSARTAN [Concomitant]
     Active Substance: LOSARTAN
  10. PRAVASTATIN [Concomitant]
     Active Substance: PRAVASTATIN\PRAVASTATIN SODIUM
  11. VIACTIV [Concomitant]
     Active Substance: CALCIUM\VITAMIN D\VITAMIN K5
  12. ELIQUIS [Suspect]
     Active Substance: APIXABAN
     Indication: ATRIAL FIBRILLATION
     Route: 048
     Dates: start: 20141104, end: 20150420
  13. PROBIOTIC [Concomitant]
     Active Substance: PROBIOTICS NOS
  14. QUERCETIN [Concomitant]
     Active Substance: QUERCETIN

REACTIONS (1)
  - Haemarthrosis [None]

NARRATIVE: CASE EVENT DATE: 20150418
